FAERS Safety Report 6830808-4 (Version None)
Quarter: 2010Q3

REPORT INFORMATION
  Report Type: 
  Country: None (occurrence: None)
  Receive Date: 20100712
  Receipt Date: 20100630
  Transmission Date: 20110219
  Serious: Yes (Hospitalization)
  Sender: FDA-Public Use
  Company Number: DE-TEVA-239923ISR

PATIENT
  Age: 26 Year
  Sex: Female

DRUGS (4)
  1. TORASEMIDE [Suspect]
     Indication: CONGESTIVE CARDIOMYOPATHY
     Route: 048
     Dates: start: 20090901
  2. XIPAMIDE [Suspect]
     Indication: CARDIAC FAILURE
     Route: 048
     Dates: start: 20090901, end: 20100330
  3. ARIPIPRAZOLE [Suspect]
     Indication: SCHIZOPHRENIA
     Route: 048
     Dates: start: 20081201, end: 20090901
  4. ARIPIPRAZOLE [Suspect]
     Route: 048
     Dates: start: 20090901

REACTIONS (1)
  - DIABETES MELLITUS [None]
